FAERS Safety Report 17847065 (Version 1)
Quarter: 2020Q2

REPORT INFORMATION
  Report Type: Spontaneous
  Country: FR (occurrence: FR)
  Receive Date: 20200601
  Receipt Date: 20200601
  Transmission Date: 20200714
  Serious: Yes (Death, Hospitalization)
  Sender: FDA-Public Use
  Company Number: FR-MYLANLABS-2020M1052594

PATIENT
  Age: 69 Year
  Sex: Male

DRUGS (7)
  1. AZACITIDINE. [Suspect]
     Active Substance: AZACITIDINE
     Indication: ACUTE MYELOID LEUKAEMIA
     Dosage: 75 MILLIGRAM/SQ. METER
     Route: 058
     Dates: start: 20180409, end: 20180805
  2. ZYMAD [Concomitant]
     Active Substance: CHOLECALCIFEROL
     Indication: PROPHYLAXIS
     Dosage: 80000 IU (INTERNATIONAL UNIT)
     Route: 048
     Dates: start: 2018
  3. RASBURICASE [Concomitant]
     Active Substance: RASBURICASE
     Indication: PROPHYLAXIS
     Dosage: 15 MILLIGRAM
     Route: 041
     Dates: start: 20180409, end: 20190411
  4. PRIMPERAN [Concomitant]
     Active Substance: METOCLOPRAMIDE HYDROCHLORIDE
     Indication: ALLERGY PROPHYLAXIS
     Dosage: 5 MILLIGRAM
     Route: 041
     Dates: start: 20180408
  5. CALCIDOSE VITAMINE D [Concomitant]
     Active Substance: CALCIUM\CHOLECALCIFEROL
     Indication: PROPHYLAXIS
     Dosage: 1000 IU (INTERNATIONAL UNIT)
     Route: 048
     Dates: start: 2018
  6. BISOCE [Concomitant]
     Active Substance: BISOPROLOL
     Indication: ATRIAL FIBRILLATION
     Dosage: 2.5 MILLIGRAM
     Route: 048
     Dates: start: 20180315
  7. NORMAL SALINE [Concomitant]
     Active Substance: SODIUM CHLORIDE
     Indication: PROPHYLAXIS
     Dosage: UNK
     Route: 041
     Dates: start: 20180409, end: 20180416

REACTIONS (3)
  - Acinetobacter bacteraemia [Unknown]
  - Cardiac failure [Unknown]
  - Septic shock [Fatal]

NARRATIVE: CASE EVENT DATE: 20180821
